FAERS Safety Report 7235217-4 (Version None)
Quarter: 2011Q1

REPORT INFORMATION
  Report Type: 
  Country: None (occurrence: None)
  Receive Date: 20110107
  Receipt Date: 20110104
  Transmission Date: 20110831
  Serious: No
  Sender: FDA-Public Use
  Company Number: 2010006630

PATIENT
  Sex: Male

DRUGS (1)
  1. FENTORA [Suspect]
     Indication: PANCREATITIS CHRONIC
     Dosage: (800 MCG),BU ; (400 MCG),BU
     Route: 002

REACTIONS (4)
  - DRUG INEFFECTIVE [None]
  - DRUG PRESCRIBING ERROR [None]
  - TABLET PHYSICAL ISSUE [None]
  - POOR QUALITY DRUG ADMINISTERED [None]
